FAERS Safety Report 5192077-3 (Version None)
Quarter: 2006Q4

REPORT INFORMATION
  Report Type: 
  Country: None (occurrence: None)
  Receive Date: 20061221
  Receipt Date: 20061221
  Transmission Date: 20070319
  Serious: Yes (Hospitalization)
  Sender: FDA-Public Use
  Company Number: None

PATIENT

DRUGS (2)
  1. BETAMETHASONE ACETATE [Suspect]
     Indication: SINUSITIS
     Dosage: 3 TO 6 MG  ONCE IM
     Route: 030
     Dates: start: 20061204, end: 20061207
  2. BETAMETHASONE ACETATE [Suspect]
     Indication: UPPER RESPIRATORY TRACT INFECTION
     Dosage: 3 TO 6 MG  ONCE IM
     Route: 030
     Dates: start: 20061204, end: 20061207

REACTIONS (3)
  - CONTUSION [None]
  - IMPAIRED HEALING [None]
  - INFLAMMATION [None]
